FAERS Safety Report 12101335 (Version 1)
Quarter: 2016Q1

REPORT INFORMATION
  Report Type: Report from Study
  Country: US (occurrence: US)
  Receive Date: 20160222
  Receipt Date: 20160222
  Transmission Date: 20160526
  Serious: Yes (Death, Hospitalization)
  Sender: FDA-Public Use
  Company Number: US-JNJFOC-20160217776

PATIENT
  Age: 64 Year
  Sex: Male
  Weight: 81.65 kg

DRUGS (1)
  1. REMICADE [Suspect]
     Active Substance: INFLIXIMAB
     Indication: RHEUMATOID ARTHRITIS
     Dosage: DRUG STARTED IN 2006 OR 2007
     Route: 042

REACTIONS (3)
  - Blood sodium decreased [Unknown]
  - Lung neoplasm malignant [Fatal]
  - Eye disorder [Unknown]

NARRATIVE: CASE EVENT DATE: 2010
